FAERS Safety Report 6141950-8 (Version None)
Quarter: 2009Q2

REPORT INFORMATION
  Report Type: 
  Country: None (occurrence: None)
  Receive Date: 20090402
  Receipt Date: 20090319
  Transmission Date: 20091009
  Serious: Yes (Hospitalization)
  Sender: FDA-Public Use
  Company Number: KR-ROCHE-622370

PATIENT
  Sex: Female
  Weight: 50 kg

DRUGS (5)
  1. CAPECITABINE [Suspect]
     Dosage: MOST RECENT DATE OF DOSE REPORTED AS ^36 OCT 2009^. 2 WEEKS TREATMENT, 1 WEEK REST.
     Route: 048
     Dates: start: 20081028
  2. OXALIPLATIN [Suspect]
     Dosage: GIVEN ON DAY 1, MOST RECENT DOSE: 24 FEB 2009
     Route: 042
     Dates: start: 20081028
  3. CEFDINIR [Concomitant]
     Dates: start: 20090317
  4. ZALTOPROFEN [Concomitant]
     Dates: start: 20090317
  5. ECABET [Concomitant]
     Dosage: DRUG: ECABET NA, TDD: 4.5 G/PACK
     Dates: start: 20090317

REACTIONS (1)
  - GINGIVITIS [None]
